FAERS Safety Report 7082877-7 (Version None)
Quarter: 2010Q4

REPORT INFORMATION
  Report Type: 
  Country: None (occurrence: None)
  Receive Date: 20101104
  Receipt Date: 20101021
  Transmission Date: 20110411
  Serious: Yes (Hospitalization, Disabling)
  Sender: FDA-Public Use
  Company Number: PHHY2010DE71243

PATIENT
  Sex: Female

DRUGS (2)
  1. SANDIMMUNE [Suspect]
     Indication: TRANSPLANT
     Dosage: UNK
     Route: 048
     Dates: start: 20061201
  2. DICLOFENAC SODIUM [Suspect]

REACTIONS (6)
  - DIALYSIS [None]
  - DRUG INTERACTION [None]
  - DRUG LEVEL FLUCTUATING [None]
  - ERYSIPELAS [None]
  - LIMB DISCOMFORT [None]
  - TRANSPLANT REJECTION [None]
